FAERS Safety Report 10270067 (Version 2)
Quarter: 2014Q3

REPORT INFORMATION
  Report Type: Spontaneous
  Country: US (occurrence: None)
  Receive Date: 20140626
  Receipt Date: 20140707
  Transmission Date: 20150326
  Serious: Yes (Death, Hospitalization)
  Sender: FDA-Public Use
  Company Number: UNT-2014-002595

PATIENT
  Age: 30 Year
  Sex: Female
  Weight: 114.7 kg

DRUGS (4)
  1. REMODULIN [Suspect]
     Active Substance: TREPROSTINIL
     Indication: PULMONARY ARTERIAL HYPERTENSION
     Route: 041
     Dates: start: 200111
  2. ADCIRCA [Concomitant]
     Active Substance: TADALAFIL
  3. TRACLEER [Concomitant]
     Active Substance: BOSENTAN\BOSENTAN MONOHYDRATE
  4. XARELTO [Concomitant]
     Active Substance: RIVAROXABAN

REACTIONS (3)
  - Cerebrovascular accident [None]
  - Dyspnoea [None]
  - Loss of consciousness [None]

NARRATIVE: CASE EVENT DATE: 20140610
